FAERS Safety Report 16291779 (Version 2)
Quarter: 2019Q2

REPORT INFORMATION
  Report Type: Report from Study
  Country: US (occurrence: US)
  Receive Date: 20190509
  Receipt Date: 20190528
  Transmission Date: 20190711
  Serious: No
  Sender: FDA-Public Use
  Company Number: US-OTSUKA-2019_012964

PATIENT
  Age: 62 Year
  Sex: Male
  Weight: 77.1 kg

DRUGS (2)
  1. TOLVAPTAN [Suspect]
     Active Substance: TOLVAPTAN
     Indication: CONGENITAL CYSTIC KIDNEY DISEASE
     Dosage: 90 MG, QD AM
     Route: 048
     Dates: start: 20181019, end: 20190331
  2. TOLVAPTAN [Suspect]
     Active Substance: TOLVAPTAN
     Dosage: 30 MG, QD PM
     Route: 048
     Dates: start: 20181019, end: 20190331

REACTIONS (3)
  - Urinary incontinence [Recovered/Resolved]
  - Thirst [Recovered/Resolved]
  - Pollakiuria [Recovered/Resolved]

NARRATIVE: CASE EVENT DATE: 20190401
